FAERS Safety Report 10259874 (Version 2)
Quarter: 2014Q3

REPORT INFORMATION
  Report Type: Spontaneous
  Country: RO (occurrence: RO)
  Receive Date: 20140625
  Receipt Date: 20140702
  Transmission Date: 20150326
  Serious: Yes (Other)
  Sender: FDA-Public Use
  Company Number: RO-ASTRAZENECA-2014SE45337

PATIENT
  Age: 76 Year
  Sex: Male

DRUGS (4)
  1. CEREBROLYSIN [Concomitant]
     Active Substance: CEREBROLYSIN
  2. ZOLADEX [Suspect]
     Active Substance: GOSERELIN ACETATE
     Indication: PROSTATE CANCER
     Route: 058
     Dates: start: 20140617
  3. ZOLADEX [Suspect]
     Active Substance: GOSERELIN ACETATE
     Indication: PROSTATE CANCER
     Route: 058
     Dates: start: 20131016, end: 20140506
  4. CASODEX [Concomitant]
     Active Substance: BICALUTAMIDE

REACTIONS (5)
  - Hypertension [Unknown]
  - Cerebral haemorrhage [Unknown]
  - Bladder disorder [Unknown]
  - Cerebrovascular accident [Unknown]
  - Abdominal pain upper [Unknown]

NARRATIVE: CASE EVENT DATE: 20140506
